FAERS Safety Report 6121008-4 (Version None)
Quarter: 2009Q1

REPORT INFORMATION
  Report Type: 
  Country: None (occurrence: None)
  Receive Date: 20090317
  Receipt Date: 20090306
  Transmission Date: 20090719
  Serious: Yes (Other)
  Sender: FDA-Public Use
  Company Number: PHHY2009GB07284

PATIENT
  Sex: Male
  Weight: 92.8 kg

DRUGS (4)
  1. CLOZARIL [Suspect]
     Indication: SCHIZOPHRENIA
     Dosage: 300 MG PER DAY
     Route: 048
     Dates: start: 20021014
  2. CLOZARIL [Suspect]
     Indication: SCHIZOAFFECTIVE DISORDER
  3. VALPROATE SODIUM [Concomitant]
  4. LANSOPRAZOLE [Concomitant]
     Dosage: 15 MG
     Route: 048

REACTIONS (3)
  - ANTIPSYCHOTIC DRUG LEVEL INCREASED [None]
  - CEREBROVASCULAR ACCIDENT [None]
  - VISION BLURRED [None]
